FAERS Safety Report 18585576 (Version 1)
Quarter: 2020Q4

REPORT INFORMATION
  Report Type: Other
  Country: US (occurrence: US)
  Receive Date: 20201207
  Receipt Date: 20201207
  Transmission Date: 20210114
  Serious: Yes (Life-Threatening)
  Sender: FDA-Public Use
  Company Number: US-ROCHE-2726648

PATIENT
  Age: 35 Year
  Sex: Male

DRUGS (7)
  1. NORCO [Concomitant]
     Active Substance: ACETAMINOPHEN\HYDROCODONE BITARTRATE
     Indication: SEPSIS
     Route: 048
     Dates: start: 20201024, end: 20201028
  2. PYRIDOSTIGMINE [Concomitant]
     Active Substance: PYRIDOSTIGMINE
     Indication: SPINAL MUSCULAR ATROPHY
     Route: 048
     Dates: start: 20200416
  3. LIDOCAINE. [Concomitant]
     Active Substance: LIDOCAINE
     Indication: PAIN IN EXTREMITY
     Route: 062
     Dates: start: 20201124
  4. RISDIPLAM. [Suspect]
     Active Substance: RISDIPLAM
     Indication: SPINAL MUSCULAR ATROPHY
     Dosage: ON 24/NOV/2020, MOST RECENT DOSE OF RISDIPLAM ADMINISTERED PRIOR TO AE.
     Route: 048
     Dates: start: 19850119
  5. DIPHENHYDRAMINE. [Concomitant]
     Active Substance: DIPHENHYDRAMINE
     Indication: THROAT IRRITATION
     Dosage: FOR THROAT IRRITATION AFTER TRACHEOSTOMY
     Route: 048
  6. DICLOFENAC SODIUM. [Concomitant]
     Active Substance: DICLOFENAC SODIUM
     Indication: PAIN IN EXTREMITY
     Route: 061
     Dates: start: 20201124
  7. LINEZOLID. [Concomitant]
     Active Substance: LINEZOLID
     Indication: SEPSIS
     Route: 048
     Dates: start: 20201024, end: 20201029

REACTIONS (1)
  - Deep vein thrombosis [Not Recovered/Not Resolved]

NARRATIVE: CASE EVENT DATE: 20201124
